FAERS Safety Report 18947412 (Version 5)
Quarter: 2021Q4

REPORT INFORMATION
  Report Type: Other
  Country: JP (occurrence: JP)
  Receive Date: 20210227
  Receipt Date: 20211025
  Transmission Date: 20220303
  Serious: Yes (Other)
  Sender: FDA-Public Use
  Company Number: JP-CHUGAI-A2020046560ROCHE

PATIENT
  Age: 77 Year
  Sex: Male
  Weight: 59 kg

DRUGS (4)
  1. ENTRECTINIB [Suspect]
     Active Substance: ENTRECTINIB
     Indication: Head and neck cancer
     Route: 048
     Dates: start: 20201010, end: 20201023
  2. ENTRECTINIB [Suspect]
     Active Substance: ENTRECTINIB
     Route: 048
     Dates: start: 20201024, end: 20201127
  3. ENTRECTINIB [Suspect]
     Active Substance: ENTRECTINIB
     Route: 048
     Dates: start: 20201128, end: 20201210
  4. ENTRECTINIB [Suspect]
     Active Substance: ENTRECTINIB
     Route: 048
     Dates: start: 20201211, end: 20210118

REACTIONS (5)
  - Dizziness [Unknown]
  - Decreased appetite [Not Recovered/Not Resolved]
  - Malaise [Unknown]
  - Dysphagia [Recovered/Resolved]
  - Ataxia [Recovering/Resolving]
